FAERS Safety Report 15204144 (Version 1)
Quarter: 2018Q3

REPORT INFORMATION
  Report Type: Spontaneous
  Country: US (occurrence: US)
  Receive Date: 20180726
  Receipt Date: 20180726
  Transmission Date: 20181010
  Serious: No
  Sender: FDA-Public Use
  Company Number: US-GLAXOSMITHKLINE-US2018128775

PATIENT
  Sex: Female

DRUGS (1)
  1. ADVAIR DISKUS [Suspect]
     Active Substance: FLUTICASONE PROPIONATE\SALMETEROL XINAFOATE
     Indication: ATYPICAL MYCOBACTERIAL INFECTION
     Dosage: 2 PUFF(S), UNK
     Dates: start: 2017

REACTIONS (2)
  - Product use in unapproved indication [Unknown]
  - Off label use [Unknown]
